FAERS Safety Report 6077798-2 (Version None)
Quarter: 2009Q1

REPORT INFORMATION
  Report Type: 
  Country: None (occurrence: None)
  Receive Date: 20090213
  Receipt Date: 20090202
  Transmission Date: 20090719
  Serious: Yes (Other)
  Sender: FDA-Public Use
  Company Number: FR-PFIZER INC-2009165270

PATIENT

DRUGS (14)
  1. TRIFLUCAN [Suspect]
     Dosage: UNK
     Route: 042
     Dates: start: 20081210, end: 20081210
  2. ONCASPAR [Suspect]
     Indication: ACUTE LYMPHOCYTIC LEUKAEMIA
     Dosage: UNK
     Route: 030
     Dates: start: 20081211
  3. NALBUPHINE [Suspect]
     Indication: PAIN
     Dosage: UNK
     Route: 042
     Dates: start: 20081211
  4. METHOTREXATE [Suspect]
     Indication: CHEMOTHERAPY
     Dosage: UNK
     Route: 042
     Dates: start: 20081208, end: 20081210
  5. VINCRISTINE [Suspect]
     Indication: CHEMOTHERAPY
     Dosage: UNK
     Route: 042
     Dates: start: 20081208, end: 20081208
  6. ZOPHREN [Suspect]
     Dosage: UNK
     Route: 042
     Dates: start: 20081211, end: 20081211
  7. DECTANCYL [Suspect]
     Dosage: UNK
     Route: 048
     Dates: start: 20081211, end: 20081211
  8. BEVITINE [Suspect]
     Dosage: UNK
     Route: 042
     Dates: start: 20081211, end: 20081211
  9. PYRIDOXINE [Suspect]
     Dosage: UNK
     Route: 042
     Dates: start: 20081211, end: 20081211
  10. CYTARABINE [Concomitant]
     Dosage: UNK
     Route: 037
     Dates: start: 20081210, end: 20081210
  11. METHYLPREDNISOLONE [Concomitant]
     Dosage: UNK
     Route: 037
     Dates: start: 20081210, end: 20081210
  12. PREGABALIN [Concomitant]
     Dosage: UNK
  13. OMEPRAZOLE [Concomitant]
     Dosage: UNK
     Route: 042
     Dates: start: 20081210, end: 20081210
  14. LASILIX [Concomitant]
     Dosage: UNK
     Route: 042
     Dates: start: 20081211, end: 20081211

REACTIONS (2)
  - ASTHMATIC CRISIS [None]
  - URTICARIA [None]
